FAERS Safety Report 6540474-3 (Version None)
Quarter: 2010Q1

REPORT INFORMATION
  Report Type: 
  Country: None (occurrence: None)
  Receive Date: 20100113
  Receipt Date: 20091230
  Transmission Date: 20100710
  Serious: Yes (Death, Hospitalization)
  Sender: FDA-Public Use
  Company Number: 2010AL000102

PATIENT
  Age: 41 Year
  Sex: Male

DRUGS (18)
  1. GABAPENTIN [Suspect]
     Indication: DRUG USE FOR UNKNOWN INDICATION
     Dosage: PO
     Route: 048
     Dates: start: 20060125
  2. FENTANYL [Suspect]
     Indication: DRUG USE FOR UNKNOWN INDICATION
     Dosage: TDER
     Route: 062
     Dates: start: 20060129
  3. PAREGORIC LIQUID USP (ALPHARMA)	(PAREGORIC LIQUID USP (ALPHARMA)) [Suspect]
     Indication: DRUG USE FOR UNKNOWN INDICATION
     Dosage: SC
     Route: 058
     Dates: start: 20060124, end: 20060129
  4. PAREGORIC LIQUID USP (ALPHARMA)	(PAREGORIC LIQUID USP (ALPHARMA)) [Suspect]
     Indication: DRUG USE FOR UNKNOWN INDICATION
     Dosage: PO
     Route: 048
     Dates: start: 20060118, end: 20060124
  5. SUTENT [Concomitant]
  6. AMITRIPTYLINE HCL [Concomitant]
  7. LANSOPRAZOLE [Concomitant]
  8. CREON [Concomitant]
  9. METOCLOPRAMIDE [Concomitant]
  10. DOCUSATE SODIUM [Concomitant]
  11. ZOPICLONE [Concomitant]
  12. BISACODYL [Concomitant]
  13. LEVOMEPROMAZINE [Concomitant]
  14. GLYCEROL 2.6% [Concomitant]
  15. DEXAMETHASONE [Concomitant]
  16. CO-DANTHRAMER [Concomitant]
  17. MICROLAX [Concomitant]
  18. BUSCOPAN [Concomitant]

REACTIONS (3)
  - ABDOMINAL PAIN [None]
  - CONSTIPATION [None]
  - VOMITING [None]
